FAERS Safety Report 5600172-7 (Version None)
Quarter: 2008Q1

REPORT INFORMATION
  Report Type: 
  Country: None (occurrence: None)
  Receive Date: 20080117
  Receipt Date: 20080117
  Transmission Date: 20080703
  Serious: Yes (Hospitalization)
  Sender: FDA-Public Use
  Company Number: None

PATIENT
  Age: 55 Year
  Sex: Male
  Weight: 86.18 kg

DRUGS (2)
  1. OXYCODONE AND ACETAMINOPHEN [Suspect]
     Indication: PAIN
     Dosage: 5/325MG PRN PO
     Route: 048
     Dates: start: 20071031, end: 20071115
  2. MORPHINE [Suspect]
     Dosage: 15MG BID
     Dates: start: 20071031, end: 20071115

REACTIONS (1)
  - CONSTIPATION [None]
